FAERS Safety Report 9547386 (Version 1)
Quarter: 2013Q2

REPORT INFORMATION
  Report Type: Spontaneous
  Country: US (occurrence: None)
  Receive Date: 20130606
  Receipt Date: 20130606
  Transmission Date: 20140414
  Serious: Yes (Other)
  Sender: FDA-Public Use
  Company Number: 2013PROUSA02632

PATIENT
  Age: 56 Year
  Sex: Male

DRUGS (1)
  1. PROVENGE [Suspect]
     Indication: PROSTATE CANCER METASTATIC
     Route: 042
     Dates: start: 20130221, end: 20130221

REACTIONS (5)
  - Oxygen saturation decreased [None]
  - Heart rate increased [None]
  - Chills [None]
  - Nausea [None]
  - Headache [None]
